FAERS Safety Report 4914190-5 (Version None)
Quarter: 2006Q1

REPORT INFORMATION
  Report Type: 
  Country: None (occurrence: None)
  Receive Date: 20060213
  Receipt Date: 20060130
  Transmission Date: 20060701
  Serious: Yes (Hospitalization)
  Sender: FDA-Public Use
  Company Number: 2006JP000137

PATIENT
  Age: 72 Year
  Sex: Female

DRUGS (8)
  1. PROGRAF [Suspect]
     Indication: RHEUMATOID ARTHRITIS
     Dosage: 0.5 MG, UID/QD, ORAL
     Route: 048
     Dates: start: 20050930, end: 20051222
  2. SULINPEN (SULINDAC) TABLET [Concomitant]
  3. ALTAT         (ROXATIDINE ACETATE HYDROCHLORIDE) CAPSULE [Concomitant]
  4. MUCODYNE (CARBOCISTEINE) [Concomitant]
  5. PREDNISOLONE [Concomitant]
  6. LEVOTHYROXINE SODIUM [Concomitant]
  7. MICARDIS [Concomitant]
  8. MAGMITT (MAGNESIUM OXIDE) [Concomitant]

REACTIONS (4)
  - C-REACTIVE PROTEIN INCREASED [None]
  - CHOLECYSTITIS ACUTE [None]
  - DEHYDRATION [None]
  - RENAL IMPAIRMENT [None]
